FAERS Safety Report 10168343 (Version 1)
Quarter: 2014Q2

REPORT INFORMATION
  Report Type: Report from Study
  Country: CA (occurrence: CA)
  Receive Date: 20140512
  Receipt Date: 20140512
  Transmission Date: 20141212
  Serious: Yes (Other)
  Sender: FDA-Public Use
  Company Number: PHHY2014CA057401

PATIENT
  Sex: Female

DRUGS (5)
  1. ACLASTA [Suspect]
     Indication: OSTEOPOROSIS
     Dosage: UNK UKN, UNK
     Dates: start: 20090601
  2. ACLASTA [Suspect]
     Dosage: UNK UKN, UNK
     Dates: start: 20100615
  3. ACLASTA [Suspect]
     Dosage: UNK UKN, UNK
     Dates: start: 20110607
  4. ACLASTA [Suspect]
     Dosage: UNK UKN, UNK
     Dates: start: 20120615
  5. ACLASTA [Suspect]
     Dosage: UNK UKN, UNK
     Dates: start: 20130527

REACTIONS (1)
  - Hepatic cancer [Unknown]
